FAERS Safety Report 17755685 (Version 1)
Quarter: 2020Q2

REPORT INFORMATION
  Report Type: Spontaneous
  Country: US (occurrence: US)
  Receive Date: 20200507
  Receipt Date: 20200507
  Transmission Date: 20200714
  Serious: No
  Sender: FDA-Public Use
  Company Number: US-SA-2020SA113832

PATIENT
  Age: 51 Year
  Sex: Female

DRUGS (11)
  1. OXYCODONE [Concomitant]
     Active Substance: OXYCODONE
  2. ZANAFLEX [Concomitant]
     Active Substance: TIZANIDINE HYDROCHLORIDE
  3. HYDROXYZINE [Concomitant]
     Active Substance: HYDROXYZINE HYDROCHLORIDE
  4. COGENTIN [Concomitant]
     Active Substance: BENZTROPINE MESYLATE
  5. HALOPERIDOL. [Concomitant]
     Active Substance: HALOPERIDOL
  6. PANTOPRAZOLE [Concomitant]
     Active Substance: PANTOPRAZOLE
  7. NYSTATIN. [Concomitant]
     Active Substance: NYSTATIN
  8. GABAPENTIN. [Concomitant]
     Active Substance: GABAPENTIN
  9. DUPILUMAB [Suspect]
     Active Substance: DUPILUMAB
     Indication: DERMATITIS ATOPIC
     Dosage: 300 MG, QOW
     Route: 058
     Dates: start: 20200319
  10. LISINOPRIL. [Concomitant]
     Active Substance: LISINOPRIL
  11. ZOFRAN [Concomitant]
     Active Substance: ONDANSETRON HYDROCHLORIDE

REACTIONS (2)
  - Wrong technique in device usage process [Not Recovered/Not Resolved]
  - Injection site bruising [Not Recovered/Not Resolved]

NARRATIVE: CASE EVENT DATE: 20200420
